FAERS Safety Report 4283988-1 (Version None)
Quarter: 2004Q1

REPORT INFORMATION
  Report Type: 
  Country: None (occurrence: None)
  Receive Date: 20040202
  Receipt Date: 20040202
  Transmission Date: 20041129
  Serious: Yes (Other)
  Sender: FDA-Public Use
  Company Number: None

PATIENT
  Sex: Female
  Weight: 54.4316 kg

DRUGS (1)
  1. TRI-SPRINTEC [Suspect]
     Indication: CONTRACEPTION
     Dosage: ONE TABLET DAILY ORAL
     Route: 048
     Dates: start: 20040102, end: 20040123

REACTIONS (2)
  - HAEMORRHAGE [None]
  - MUSCLE CRAMP [None]
